FAERS Safety Report 10354795 (Version 1)
Quarter: 2014Q3

REPORT INFORMATION
  Report Type: Spontaneous
  Country: CA (occurrence: None)
  Receive Date: 20140729
  Receipt Date: 20140729
  Transmission Date: 20150326
  Serious: No
  Sender: FDA-Public Use
  Company Number: None

PATIENT
  Age: 67 Year
  Sex: Female
  Weight: 74.84 kg

DRUGS (1)
  1. AVASTIN [Suspect]
     Active Substance: BEVACIZUMAB
     Indication: AGE-RELATED MACULAR DEGENERATION
     Dosage: ONCE MONTHLY FOR 2 INTO THE EYE
     Route: 047

REACTIONS (11)
  - Tinnitus [None]
  - Dizziness [None]
  - Blood pressure increased [None]
  - Feeling abnormal [None]
  - Eye disorder [None]
  - Impaired driving ability [None]
  - Gastric disorder [None]
  - Skin discolouration [None]
  - Paraesthesia [None]
  - Hemiparesis [None]
  - Depressed mood [None]

NARRATIVE: CASE EVENT DATE: 20140701
